FAERS Safety Report 4604152-X (Version None)
Quarter: 2005Q1

REPORT INFORMATION
  Report Type: 
  Country: None (occurrence: None)
  Receive Date: 20050214
  Receipt Date: 20041116
  Transmission Date: 20050727
  Serious: No
  Sender: FDA-Public Use
  Company Number: US_0411108486

PATIENT
  Age: 62 Year
  Sex: Male
  Weight: 93 kg

DRUGS (7)
  1. CIALIS [Suspect]
     Dosage: 20 MG
     Dates: start: 20040401
  2. TAMSULOSIN HCL [Concomitant]
  3. METRONIDAZOLE [Concomitant]
  4. ECONAZOLE NITRATE [Concomitant]
  5. CLOBETASOL PROPIONATE [Concomitant]
  6. DESONIDE [Concomitant]
  7. HYDROCORTISONE [Concomitant]

REACTIONS (3)
  - ASTHENIA [None]
  - DEPRESSION [None]
  - SKIN DISORDER [None]
